FAERS Safety Report 5486138-9 (Version None)
Quarter: 2007Q4

REPORT INFORMATION
  Report Type: 
  Country: None (occurrence: None)
  Receive Date: 20071015
  Receipt Date: 20071004
  Transmission Date: 20080405
  Serious: Yes (Disabling, Other)
  Sender: FDA-Public Use
  Company Number: JP-PFIZER INC-2007070291

PATIENT
  Sex: Female
  Weight: 56.3 kg

DRUGS (16)
  1. SULPERAZON [Suspect]
     Indication: FEBRILE NEUTROPENIA
     Route: 042
     Dates: start: 20060809, end: 20070507
  2. POLYMYXIN B SULFATE [Suspect]
     Route: 048
     Dates: start: 20061201, end: 20070924
  3. VFEND [Suspect]
     Indication: FUNGAL INFECTION
     Route: 048
     Dates: start: 20060727, end: 20070704
  4. UNASYN ORAL [Suspect]
     Indication: FEBRILE NEUTROPENIA
     Route: 048
     Dates: start: 20060728, end: 20070801
  5. ATARAX [Suspect]
     Indication: INSOMNIA
     Route: 042
     Dates: start: 20060823, end: 20060823
  6. DIFLUCAN [Suspect]
     Indication: FUNGAL INFECTION
     Route: 048
  7. ZYVOX [Suspect]
     Indication: FEBRILE NEUTROPENIA
     Dosage: DAILY DOSE:1200MG
     Route: 042
     Dates: start: 20060511, end: 20060517
  8. LASTET [Suspect]
     Indication: CHEMOTHERAPY
     Dosage: DAILY DOSE:50MG
     Route: 042
     Dates: start: 20060624, end: 20060707
  9. KYTRIL [Suspect]
     Indication: NAUSEA
     Dosage: DAILY DOSE:3MG
     Route: 042
     Dates: start: 20060624, end: 20060707
  10. CYLOCIDE [Suspect]
     Indication: CHEMOTHERAPY
     Dosage: DAILY DOSE:300MG
     Route: 042
     Dates: start: 20060624, end: 20060707
  11. MITOXANTRONE HCL [Suspect]
     Indication: ACUTE MYELOID LEUKAEMIA
     Dosage: DAILY DOSE:12MG
     Route: 042
     Dates: start: 20060624, end: 20060624
  12. PREDONINE [Suspect]
     Route: 042
     Dates: start: 20060915, end: 20070726
  13. METHOTREXATE [Suspect]
     Indication: CHEMOTHERAPY
     Route: 042
     Dates: start: 20061214, end: 20070222
  14. DAUNOMYCIN [Suspect]
     Route: 042
     Dates: start: 20061109, end: 20061109
  15. ACLACINON [Suspect]
     Indication: CHEMOTHERAPY
     Route: 042
  16. MITOXANTRONE HCL [Suspect]
     Dosage: DAILY DOSE:11MG
     Route: 042
     Dates: start: 20070630, end: 20070630

REACTIONS (1)
  - LEUKOENCEPHALOPATHY [None]
